FAERS Safety Report 10254793 (Version 1)
Quarter: 2014Q2

REPORT INFORMATION
  Report Type: Spontaneous
  Country: US (occurrence: None)
  Receive Date: 20140620
  Receipt Date: 20140620
  Transmission Date: 20141212
  Serious: Yes (Life-Threatening, Hospitalization)
  Sender: FDA-Public Use
  Company Number: None

PATIENT
  Age: 43 Year
  Sex: Male
  Weight: 113.4 kg

DRUGS (1)
  1. LEVAQUIN [Suspect]
     Indication: PNEUMONIA
     Dosage: 500MG, 2 PO 1ST DAY, 1 QD AFTT, ONCE DAILY, TAKEN BY MOUTH
     Route: 048
     Dates: start: 20140505, end: 20140510

REACTIONS (4)
  - Myalgia [None]
  - Asthenia [None]
  - Guillain-Barre syndrome [None]
  - Fatigue [None]
